FAERS Safety Report 5420821-6 (Version None)
Quarter: 2007Q3

REPORT INFORMATION
  Report Type: 
  Country: None (occurrence: None)
  Receive Date: 20070816
  Receipt Date: 20070806
  Transmission Date: 20080115
  Serious: Yes (Hospitalization)
  Sender: FDA-Public Use
  Company Number: 2007-03683

PATIENT
  Age: 56 Year
  Sex: Female

DRUGS (3)
  1. METOPROLOL (WATSON LABORATORIES)(METOPROLOL TARTRATE) TABLET, 100MG [Suspect]
     Indication: SUICIDE ATTEMPT
     Dosage: 15 TABLET, SINGLE, ORAL
     Route: 048
     Dates: start: 20060101
  2. RAMIPRIL/HCTZ [Concomitant]
  3. TIOTROPIUM BROMIDE [Concomitant]

REACTIONS (10)
  - ACUTE MYOCARDIAL INFARCTION [None]
  - ARRHYTHMIA [None]
  - BRADYCARDIA [None]
  - CARDIOVASCULAR DISORDER [None]
  - DRUG TOXICITY [None]
  - EJECTION FRACTION DECREASED [None]
  - HYPOTENSION [None]
  - MITRAL VALVE INCOMPETENCE [None]
  - NODAL ARRHYTHMIA [None]
  - SUICIDE ATTEMPT [None]
